FAERS Safety Report 13389410 (Version 1)
Quarter: 2017Q1

REPORT INFORMATION
  Report Type: Spontaneous
  Country: US (occurrence: US)
  Receive Date: 20170331
  Receipt Date: 20170331
  Transmission Date: 20170429
  Serious: Yes (Hospitalization)
  Sender: FDA-Public Use
  Company Number: US-ASTRAZENECA-2017SE31685

PATIENT
  Age: 67 Year
  Sex: Male
  Weight: 72.6 kg

DRUGS (3)
  1. NASAL SPRAY [Concomitant]
     Active Substance: UNSPECIFIED INGREDIENT
  2. EYE DROPS [Concomitant]
  3. SYMBICORT [Suspect]
     Active Substance: BUDESONIDE\FORMOTEROL FUMARATE DIHYDRATE
     Indication: ASTHMA
     Dosage: 160/4.5 MCG, TWO INHALATIONS, TWO TIMES A DAY
     Route: 055

REACTIONS (3)
  - Vision blurred [Not Recovered/Not Resolved]
  - Cataract [Unknown]
  - Prostatic disorder [Unknown]
